FAERS Safety Report 7346549-3 (Version None)
Quarter: 2011Q1

REPORT INFORMATION
  Report Type: 
  Country: None (occurrence: None)
  Receive Date: 20110311
  Receipt Date: 20110309
  Transmission Date: 20110831
  Serious: Yes (Hospitalization, Other)
  Sender: FDA-Public Use
  Company Number: CZ-ABBOTT-11P-217-0701990-00

PATIENT
  Sex: Male
  Weight: 81 kg

DRUGS (2)
  1. HUMIRA [Suspect]
     Indication: RHEUMATOID ARTHRITIS
     Route: 058
     Dates: start: 20040802, end: 20101230
  2. HUMIRA [Suspect]
     Route: 058
     Dates: start: 20110128

REACTIONS (1)
  - OSTEOARTHRITIS [None]
